FAERS Safety Report 9764650 (Version 1)
Quarter: 2013Q4

REPORT INFORMATION
  Report Type: Spontaneous
  Country: US (occurrence: None)
  Receive Date: 20131213
  Receipt Date: 20131213
  Transmission Date: 20140711
  Serious: Yes (Other)
  Sender: FDA-Public Use
  Company Number: 2013SA031743

PATIENT
  Sex: Male

DRUGS (1)
  1. MENTHOL [Suspect]
     Indication: PRODUCT USED FOR UNKNOWN INDICATION

REACTIONS (4)
  - Blister [None]
  - Inflammation [None]
  - Erythema [None]
  - Product quality issue [None]
